FAERS Safety Report 6676589-9 (Version None)
Quarter: 2010Q2

REPORT INFORMATION
  Report Type: 
  Country: None (occurrence: None)
  Receive Date: 20100412
  Receipt Date: 20100405
  Transmission Date: 20101027
  Serious: Yes (Hospitalization)
  Sender: FDA-Public Use
  Company Number: JP-BAYER-201011659BYL

PATIENT
  Age: 76 Year
  Sex: Female
  Weight: 49 kg

DRUGS (15)
  1. NEXAVAR [Suspect]
     Indication: RENAL CELL CARCINOMA
     Dosage: UNIT DOSE: 200 MG
     Route: 048
     Dates: start: 20090902, end: 20090904
  2. NEXAVAR [Suspect]
     Dosage: UNIT DOSE: 200 MG
     Route: 048
     Dates: start: 20090911, end: 20091106
  3. NEXAVAR [Suspect]
     Dosage: 200MG/DAY, 400MG/DAY
     Route: 048
     Dates: start: 20100104
  4. NEXAVAR [Suspect]
     Dosage: UNIT DOSE: 200 MG
     Route: 048
     Dates: start: 20091106, end: 20100103
  5. CONIEL [Concomitant]
     Dosage: SINCE BEFORE ADMINISTRATION
     Route: 048
  6. CANDESARTAN CILEXETIL [Concomitant]
     Dosage: SINCE BEFORE ADMINISTRATION
     Route: 048
  7. CEPHADOL [Concomitant]
     Dosage: SINCE BEFORE ADMINISTRATION
     Route: 048
  8. ADETPHOS [Concomitant]
     Dosage: SINCE BEFORE ADMINISTRATION
     Route: 048
  9. DOGMATYL [Concomitant]
     Dosage: SINCE BEFORE ADMINISTRATION
     Route: 048
  10. ASPIRIN [Concomitant]
     Dosage: UNIT DOSE: 100 MG
     Route: 048
  11. DEPAS [Concomitant]
     Dosage: SINCE BEFORE ADMINISTRATION
     Route: 048
  12. VESICARE [Concomitant]
     Route: 048
     Dates: start: 20100222
  13. VESICARE [Concomitant]
     Dosage: SINCE BEFORE ADMINISTRATION
     Route: 048
     Dates: end: 20091021
  14. VESICARE [Concomitant]
     Route: 048
     Dates: start: 20091106, end: 20100221
  15. SAIREI-TO [Concomitant]
     Dosage: SINCE BEFORE ADMINISTRATION
     Route: 048

REACTIONS (9)
  - ABDOMINAL DISCOMFORT [None]
  - ABDOMINAL PAIN UPPER [None]
  - ALOPECIA [None]
  - BLOOD AMYLASE INCREASED [None]
  - FAECES HARD [None]
  - MALAISE [None]
  - PAIN IN EXTREMITY [None]
  - PALMAR-PLANTAR ERYTHRODYSAESTHESIA SYNDROME [None]
  - TINEA PEDIS [None]
